FAERS Safety Report 5410810-X (Version None)
Quarter: 2007Q3

REPORT INFORMATION
  Report Type: 
  Country: None (occurrence: None)
  Receive Date: 20070810
  Receipt Date: 20070808
  Transmission Date: 20080115
  Serious: Yes (Other)
  Sender: FDA-Public Use
  Company Number: PHNU2007DE02749

PATIENT
  Age: 79 Year
  Sex: Female
  Weight: 63 kg

DRUGS (4)
  1. ZOMETA [Suspect]
     Indication: METASTASES TO BONE
     Dosage: 4 MG, QMO
     Route: 042
     Dates: start: 20050601
  2. TAXOTERE [Suspect]
     Route: 065
     Dates: start: 20050527, end: 20061123
  3. DEXAMETHASONE 0.5MG TAB [Suspect]
     Route: 065
     Dates: start: 20050527, end: 20061123
  4. RADIOTHERAPY [Concomitant]
     Route: 065
     Dates: start: 20050901, end: 20060201

REACTIONS (9)
  - BIOPSY [None]
  - DENTAL CARIES [None]
  - DENTAL FISTULA [None]
  - OSTEONECROSIS [None]
  - OSTEOTOMY [None]
  - SCINTIGRAPHY [None]
  - SINGLE PHOTON EMISSION COMPUTERISED TOMOGRAM ABNORMAL [None]
  - TOOTH DISORDER [None]
  - TOOTH EXTRACTION [None]
